FAERS Safety Report 7618780-0 (Version None)
Quarter: 2011Q3

REPORT INFORMATION
  Report Type: 
  Country: None (occurrence: None)
  Receive Date: 20110718
  Receipt Date: 20110708
  Transmission Date: 20111222
  Serious: Yes (Death, Hospitalization, Other)
  Sender: FDA-Public Use
  Company Number: US-BAXTER-2011BH013663

PATIENT
  Sex: Female

DRUGS (1)
  1. DIANEAL [Suspect]
     Indication: PERITONEAL DIALYSIS
     Route: 033
     Dates: end: 20110514

REACTIONS (5)
  - DEATH [None]
  - BLOOD ALBUMIN DECREASED [None]
  - DECUBITUS ULCER [None]
  - GENERAL PHYSICAL HEALTH DETERIORATION [None]
  - CLOSTRIDIUM DIFFICILE COLITIS [None]
